FAERS Safety Report 7852638-7 (Version None)
Quarter: 2011Q4

REPORT INFORMATION
  Report Type: 
  Country: None (occurrence: None)
  Receive Date: 20111026
  Receipt Date: 20111018
  Transmission Date: 20120403
  Serious: Yes (Hospitalization)
  Sender: FDA-Public Use
  Company Number: US-GLAXOSMITHKLINE-B0706871A

PATIENT
  Age: 67 Year
  Sex: Female
  Weight: 92.3 kg

DRUGS (8)
  1. AVANDAMET [Suspect]
     Indication: DIABETES MELLITUS
     Route: 048
     Dates: start: 20051123, end: 20051223
  2. LEVOXYL [Concomitant]
  3. METFORMIN HCL [Concomitant]
  4. NEURONTIN [Concomitant]
  5. LANOXIN [Concomitant]
  6. AVANDIA [Suspect]
     Indication: DIABETES MELLITUS
     Dosage: 8MG PER DAY
     Route: 048
     Dates: start: 20060303, end: 20070901
  7. LOPID [Concomitant]
  8. OMEPRAZOLE [Concomitant]

REACTIONS (3)
  - CORONARY ARTERY DISEASE [None]
  - MYOCARDIAL INFARCTION [None]
  - CARDIAC FAILURE CONGESTIVE [None]
